FAERS Safety Report 8836636 (Version 1)
Quarter: 2012Q4

REPORT INFORMATION
  Report Type: Spontaneous
  Country: US (occurrence: None)
  Receive Date: 20121010
  Receipt Date: 20121010
  Transmission Date: 20130627
  Serious: Yes (Other)
  Sender: FDA-Public Use
  Company Number: B0836325A

PATIENT
  Age: 39 Year
  Sex: Male

DRUGS (3)
  1. LAMOTRIGINE [Suspect]
     Indication: IDIOPATHIC GENERALISED EPILEPSY
     Dates: start: 2006
  2. PHENYTOIN [Concomitant]
  3. VALPROATE SODIUM [Concomitant]

REACTIONS (2)
  - Lupus-like syndrome [None]
  - Status epilepticus [None]
